FAERS Safety Report 21321295 (Version 1)
Quarter: 2022Q3

REPORT INFORMATION
  Report Type: Spontaneous
  Country: US (occurrence: US)
  Receive Date: 20220912
  Receipt Date: 20220912
  Transmission Date: 20221027
  Serious: No
  Sender: FDA-Public Use
  Company Number: US-ELI_LILLY_AND_COMPANY-US202209004436

PATIENT
  Age: 42 Year
  Sex: Female

DRUGS (2)
  1. REYVOW [Suspect]
     Active Substance: LASMIDITAN
     Indication: Migraine
     Dosage: 100 MG, UNKNOWN
     Route: 065
  2. REYVOW [Suspect]
     Active Substance: LASMIDITAN
     Dosage: 50 MG, UNKNOWN
     Route: 065

REACTIONS (1)
  - Somnolence [Recovered/Resolved]
